FAERS Safety Report 21780189 (Version 2)
Quarter: 2023Q4

REPORT INFORMATION
  Report Type: Spontaneous
  Country: AU (occurrence: AU)
  Receive Date: 20221226
  Receipt Date: 20231204
  Transmission Date: 20240110
  Serious: Yes (Hospitalization)
  Sender: FDA-Public Use
  Company Number: AU-BRISTOL-MYERS SQUIBB COMPANY-2022-156925

PATIENT
  Age: 36 Year
  Sex: Male

DRUGS (1)
  1. ZEPOSIA [Suspect]
     Active Substance: OZANIMOD HYDROCHLORIDE
     Indication: Product used for unknown indication
     Dates: start: 20221215, end: 20221220

REACTIONS (7)
  - Arthralgia [Recovering/Resolving]
  - Joint swelling [Unknown]
  - Night sweats [Unknown]
  - Pyrexia [Unknown]
  - Erythema [Unknown]
  - Enthesopathy [Unknown]
  - Mobility decreased [Unknown]

NARRATIVE: CASE EVENT DATE: 20221201
